FAERS Safety Report 7767369-1 (Version None)
Quarter: 2011Q3

REPORT INFORMATION
  Report Type: 
  Country: None (occurrence: None)
  Receive Date: 20110922
  Receipt Date: 20100830
  Transmission Date: 20111222
  Serious: No
  Sender: FDA-Public Use
  Company Number: US-ASTRAZENECA-2008UW01140

PATIENT
  Age: 526 Month
  Sex: Female
  Weight: 117.9 kg

DRUGS (6)
  1. SEROQUEL [Suspect]
     Dosage: 50-100 MG
     Route: 048
     Dates: start: 20030311, end: 20080507
  2. SEROQUEL [Suspect]
     Indication: POST-TRAUMATIC STRESS DISORDER
     Dosage: 50MG - 100MG
     Route: 048
     Dates: start: 19990101
  3. SEROQUEL [Suspect]
     Route: 048
     Dates: start: 20030311
  4. CELEXA [Concomitant]
     Dosage: 20-40 MG EVERY MORNING
     Dates: start: 20011214
  5. ALPRAZOLAM [Concomitant]
     Indication: ANXIETY
     Dates: start: 20011214
  6. DOXEPIN [Concomitant]
     Dates: start: 20011214

REACTIONS (6)
  - TYPE 2 DIABETES MELLITUS [None]
  - CARDIAC DISORDER [None]
  - OBESITY [None]
  - DIABETIC COMPLICATION [None]
  - DIABETES MELLITUS [None]
  - OVERWEIGHT [None]
